FAERS Safety Report 17355936 (Version 1)
Quarter: 2020Q1

REPORT INFORMATION
  Report Type: Spontaneous
  Country: US (occurrence: US)
  Receive Date: 20200131
  Receipt Date: 20200131
  Transmission Date: 20200409
  Serious: Yes (Hospitalization)
  Sender: FDA-Public Use
  Company Number: US-UNITED THERAPEUTICS-UNT-2016-020013

PATIENT
  Age: 60 Year
  Sex: Female
  Weight: 70.8 kg

DRUGS (12)
  1. REMODULIN [Suspect]
     Active Substance: TREPROSTINIL
     Dosage: 0.007, ?G/KG, CONTINUING
     Route: 041
     Dates: start: 20161230
  2. SYMBICORT [Concomitant]
     Active Substance: BUDESONIDE\FORMOTEROL FUMARATE DIHYDRATE
     Indication: ASTHMA
     Dosage: 4 PUFFS, TOTAL DAILY DOSE
     Route: 065
     Dates: start: 20161026
  3. LOVENOX [Concomitant]
     Active Substance: ENOXAPARIN SODIUM
     Indication: PULMONARY EMBOLISM
     Dosage: 60 MG, TOTAL DAILY DOSE
     Route: 065
     Dates: start: 20161222, end: 20161222
  4. LASIX [Concomitant]
     Active Substance: FUROSEMIDE
     Indication: POLYURIA
     Dosage: 20 MG, TOTAL DAILY DOSE
     Route: 065
     Dates: start: 20161222, end: 20161231
  5. LEVAQUIN [Concomitant]
     Active Substance: LEVOFLOXACIN
     Indication: ASTHMA
     Dosage: 500 MG, TOTAL DAILY DOSE
     Route: 065
     Dates: start: 20161220, end: 20161227
  6. PREDNISONE. [Concomitant]
     Active Substance: PREDNISONE
     Indication: PRODUCT USED FOR UNKNOWN INDICATION
     Dosage: 20 MG, TOTAL DAILY DOSE
     Route: 065
     Dates: start: 20161205, end: 20161224
  7. HEPARIN [Suspect]
     Active Substance: HEPARIN SODIUM
     Indication: PULMONARY EMBOLISM
     Dosage: 5600 UNITS, TOTAL DAILY DOSE
     Route: 065
     Dates: start: 20161223, end: 20161223
  8. ALBUTEROL. [Concomitant]
     Active Substance: ALBUTEROL
     Indication: ASTHMA
     Dosage: 2 PUFFS, TOTAL DAILY DOSE (EVERY 4 HOURS, PRN)
     Route: 065
     Dates: start: 20160625, end: 20171221
  9. REMODULIN [Suspect]
     Active Substance: TREPROSTINIL
     Indication: PULMONARY HYPERTENSION
     Dosage: 0.005, ?G/KG, CONTINUING
     Route: 041
     Dates: start: 20161224
  10. ADVAIR HFA [Concomitant]
     Active Substance: FLUTICASONE PROPIONATE\SALMETEROL XINAFOATE
     Indication: ASTHMA
     Dosage: 2 PUFFS, TOTAL DAILY DOSE
     Route: 065
     Dates: start: 20161222, end: 20161224
  11. VITAMIN D [Concomitant]
     Active Substance: VITAMIN D NOS
     Indication: SUPPLEMENTATION THERAPY
     Dosage: 1000 UNITS, TOTAL DAILY DOSE
     Route: 065
     Dates: start: 20150723
  12. REMODULIN [Suspect]
     Active Substance: TREPROSTINIL
     Dosage: UNK, CONTINUING
     Route: 041
     Dates: start: 20161222

REACTIONS (1)
  - Haematoma [Recovered/Resolved]

NARRATIVE: CASE EVENT DATE: 20161224
